FAERS Safety Report 8946985 (Version 1)
Quarter: 2012Q4

REPORT INFORMATION
  Report Type: 
  Country: US (occurrence: US)
  Receive Date: 20121205
  Receipt Date: 20121205
  Transmission Date: 20130627
  Serious: No
  Sender: FDA-Public Use
  Company Number: US-TEVA-373310USA

PATIENT
  Sex: Female
  Weight: 49.94 kg

DRUGS (2)
  1. FENTORA [Suspect]
     Indication: ANORECTAL DISORDER
     Dosage: PRN/Uses 0-4/day
     Route: 002
  2. FENTORA PATCH [Concomitant]
     Indication: ANORECTAL DISORDER
     Dosage: Q 48hrs
     Route: 061
     Dates: start: 2005

REACTIONS (4)
  - Nausea [Not Recovered/Not Resolved]
  - Vomiting [Not Recovered/Not Resolved]
  - Chest pain [Not Recovered/Not Resolved]
  - Off label use [Unknown]
